FAERS Safety Report 9772321 (Version 1)
Quarter: 2013Q4

REPORT INFORMATION
  Report Type: Spontaneous
  Country: US (occurrence: None)
  Receive Date: 20131218
  Receipt Date: 20131218
  Transmission Date: 20140711
  Serious: Yes (Other)
  Sender: FDA-Public Use
  Company Number: None

PATIENT
  Age: 22 Month
  Sex: Male
  Weight: 11.2 kg

DRUGS (3)
  1. ADVATE [Suspect]
     Indication: FACTOR VIII DEFICIENCY
     Route: 042
     Dates: start: 20120924, end: 20130101
  2. ADVATE [Suspect]
     Indication: PROPHYLAXIS
     Route: 042
     Dates: start: 20120924, end: 20130101
  3. ADVATE [Suspect]
     Dosage: T11 2/21/13 ?1400 UNITS DAILY IV AS ITI
     Route: 042
     Dates: start: 20130221

REACTIONS (1)
  - Unevaluable event [None]
